FAERS Safety Report 4456875-3 (Version None)
Quarter: 2004Q3

REPORT INFORMATION
  Report Type: 
  Country: None (occurrence: None)
  Receive Date: 20040921
  Receipt Date: 20040913
  Transmission Date: 20050211
  Serious: Yes (Death)
  Sender: FDA-Public Use
  Company Number: S04-USA-06113-01

PATIENT
  Age: 50 Year
  Sex: Male

DRUGS (2)
  1. LEXAPRO [Suspect]
     Indication: DEPRESSION
  2. EFFEXOR [Suspect]
     Indication: DEPRESSION
     Dates: end: 20021201

REACTIONS (4)
  - COMPLETED SUICIDE [None]
  - ECONOMIC PROBLEM [None]
  - GUN SHOT WOUND [None]
  - REFUSAL OF TREATMENT BY PATIENT [None]
